FAERS Safety Report 8365933-2 (Version None)
Quarter: 2012Q2

REPORT INFORMATION
  Report Type: 
  Country: None (occurrence: None)
  Receive Date: 20120517
  Receipt Date: 20120510
  Transmission Date: 20120825
  Serious: Yes (Hospitalization)
  Sender: FDA-Public Use
  Company Number: US-PFIZER INC-US-WYE-H18540010

PATIENT
  Sex: Female
  Weight: 60 kg

DRUGS (3)
  1. INTERFERON [Concomitant]
     Dosage: UNK
  2. EFFEXOR XR [Suspect]
     Dosage: 75 MG, 2X/DAY
     Route: 048
     Dates: start: 20030101, end: 20101101
  3. COPEGUS [Concomitant]
     Dosage: UNK

REACTIONS (2)
  - DRUG WITHDRAWAL SYNDROME [None]
  - LIVER FUNCTION TEST ABNORMAL [None]
